FAERS Safety Report 16540428 (Version 2)
Quarter: 2019Q3

REPORT INFORMATION
  Report Type: Spontaneous
  Country: US (occurrence: US)
  Receive Date: 20190708
  Receipt Date: 20190823
  Transmission Date: 20191004
  Serious: Yes (Other)
  Sender: FDA-Public Use
  Company Number: US-PFIZER INC-2019288433

PATIENT
  Age: 46 Year
  Sex: Male
  Weight: 123.3 kg

DRUGS (3)
  1. BACTRIM [Concomitant]
     Active Substance: SULFAMETHOXAZOLE\TRIMETHOPRIM
     Dosage: UNK
  2. VANCOMYCIN HCL [Suspect]
     Active Substance: VANCOMYCIN HYDROCHLORIDE
     Indication: POSTOPERATIVE WOUND INFECTION
     Dosage: 1.75 G, 2X/DAY
     Route: 042
     Dates: start: 20190326, end: 20190328
  3. VANCOMYCIN HCL [Suspect]
     Active Substance: VANCOMYCIN HYDROCHLORIDE
     Dosage: 2 G, 2X/DAY
     Route: 042
     Dates: start: 20190328, end: 20190417

REACTIONS (2)
  - Neutrophil count decreased [Unknown]
  - Leukopenia [Recovered/Resolved]
